FAERS Safety Report 13734241 (Version 1)
Quarter: 2017Q3

REPORT INFORMATION
  Report Type: Spontaneous
  Country: US (occurrence: US)
  Receive Date: 20170708
  Receipt Date: 20170708
  Transmission Date: 20171127
  Serious: No
  Sender: FDA-Public Use
  Company Number: US-009507513-1706USA006888

PATIENT

DRUGS (7)
  1. CLINDAMYCIN. [Suspect]
     Active Substance: CLINDAMYCIN
  2. INVANZ [Suspect]
     Active Substance: ERTAPENEM SODIUM
  3. CEPHALEXIN. [Suspect]
     Active Substance: CEPHALEXIN
  4. VANCOMYCIN [Suspect]
     Active Substance: VANCOMYCIN
  5. CEFTRIAXONE. [Suspect]
     Active Substance: CEFTRIAXONE
  6. CEFAZOLIN [Suspect]
     Active Substance: CEFAZOLIN
  7. PIPERACILLIN AND TAZOBACTAM [Suspect]
     Active Substance: PIPERACILLIN SODIUM\TAZOBACTAM SODIUM

REACTIONS (1)
  - Acute generalised exanthematous pustulosis [Recovered/Resolved]
